FAERS Safety Report 7717944-5 (Version None)
Quarter: 2011Q3

REPORT INFORMATION
  Report Type: 
  Country: None (occurrence: None)
  Receive Date: 20110830
  Receipt Date: 20110825
  Transmission Date: 20111222
  Serious: Yes (Death, Other)
  Sender: FDA-Public Use
  Company Number: JP-JNJFOC-20091107894

PATIENT
  Sex: Female
  Weight: 57 kg

DRUGS (42)
  1. HACHIAZULE [Concomitant]
     Route: 049
     Dates: start: 20091112, end: 20091118
  2. HACHIAZULE [Concomitant]
     Route: 049
     Dates: start: 20091118, end: 20091121
  3. DECADRON [Concomitant]
     Route: 042
     Dates: start: 20091029, end: 20091029
  4. DECADRON [Concomitant]
     Route: 042
     Dates: start: 20091029, end: 20091029
  5. TPN [Concomitant]
     Route: 041
     Dates: start: 20091120, end: 20091121
  6. PYDOXAL [Concomitant]
     Route: 042
     Dates: start: 20091120, end: 20091120
  7. DOXORUBICIN HCL [Suspect]
     Indication: OVARIAN CANCER RECURRENT
     Route: 042
     Dates: start: 20091029, end: 20091029
  8. POVIDONE IODINE [Concomitant]
     Route: 049
     Dates: start: 20091113, end: 20091113
  9. NERISONA [Concomitant]
     Route: 061
     Dates: start: 20091113, end: 20091113
  10. ISOTONIC SODIUM CHLORIDE SOLUTION [Concomitant]
     Route: 041
     Dates: start: 20091114, end: 20091114
  11. MINOFIT [Concomitant]
     Route: 042
     Dates: start: 20091112, end: 20091112
  12. DECADRON [Concomitant]
     Route: 042
     Dates: start: 20091001, end: 20091001
  13. GRAN [Concomitant]
     Indication: FEBRILE NEUTROPENIA
     Route: 042
     Dates: start: 20091112, end: 20091112
  14. DEXALTIN [Concomitant]
     Route: 049
     Dates: start: 20091112, end: 20091112
  15. ALLOPURINOL [Concomitant]
     Route: 048
     Dates: start: 20091119, end: 20091119
  16. RESTAMIN [Concomitant]
     Indication: PROPHYLAXIS
     Route: 061
     Dates: start: 20091029
  17. EVAMYL [Concomitant]
     Indication: PROPHYLAXIS
     Route: 048
     Dates: start: 20091112, end: 20091112
  18. GRANISETRON [Concomitant]
     Route: 042
     Dates: start: 20090903, end: 20090903
  19. WHITE PETROLATUM [Concomitant]
     Route: 061
     Dates: start: 20091118, end: 20091118
  20. SEROTONE [Concomitant]
     Indication: PROPHYLAXIS
     Route: 013
     Dates: start: 20091029, end: 20091029
  21. ATARAX [Concomitant]
     Route: 048
     Dates: start: 20091113, end: 20091119
  22. SOLITA-T3 [Concomitant]
     Route: 041
     Dates: start: 20091112, end: 20091115
  23. WHITE PETROLATUM [Concomitant]
     Route: 061
     Dates: start: 20091120, end: 20091120
  24. AZUNOL [Concomitant]
     Route: 061
     Dates: start: 20091120, end: 20091121
  25. LACTATED RINGER'S [Concomitant]
     Route: 041
     Dates: start: 20091112, end: 20091118
  26. ISOTONIC SODIUM CHLORIDE SOLUTION [Concomitant]
     Route: 041
     Dates: start: 20091112, end: 20091112
  27. ALL OTHER THERAPEUTIC PRODUCT [Concomitant]
     Route: 041
     Dates: start: 20091115, end: 20091115
  28. NEUTROGIN [Concomitant]
     Route: 058
     Dates: start: 20091116, end: 20091121
  29. MORPHINE HCL ELIXIR [Concomitant]
     Indication: OVARIAN CANCER RECURRENT
     Route: 042
     Dates: start: 20091112, end: 20091112
  30. FLAVITAN [Concomitant]
     Route: 065
     Dates: start: 20091121, end: 20091121
  31. DECADRON [Concomitant]
     Indication: PROPHYLAXIS
     Route: 042
     Dates: start: 20091120, end: 20091121
  32. DECADRON [Concomitant]
     Route: 042
     Dates: start: 20091119, end: 20091119
  33. DECADRON [Concomitant]
     Route: 042
     Dates: start: 20091112, end: 20091112
  34. FLURBIPROFEN [Concomitant]
     Indication: FEBRILE NEUTROPENIA
     Route: 042
     Dates: start: 20091112, end: 20091112
  35. CHLORPHENIRAMINE MALEATE [Concomitant]
     Indication: STEVENS-JOHNSON SYNDROME
     Route: 042
     Dates: start: 20091112, end: 20091115
  36. DOXORUBICIN HCL [Suspect]
     Route: 042
     Dates: start: 20091001, end: 20091001
  37. DOXORUBICIN HCL [Suspect]
     Route: 042
     Dates: start: 20090903, end: 20090903
  38. MAXIPIME [Suspect]
     Indication: FEBRILE NEUTROPENIA
     Route: 065
     Dates: start: 20091112, end: 20091115
  39. ALL OTHER THERAPEUTIC PRODUCT [Concomitant]
     Route: 062
     Dates: start: 20091121, end: 20091121
  40. DECADRON [Concomitant]
     Route: 042
     Dates: start: 20090903, end: 20090903
  41. DECADRON [Concomitant]
     Route: 042
     Dates: start: 20091117, end: 20091118
  42. GRANISETRON [Concomitant]
     Indication: PROPHYLAXIS
     Route: 042
     Dates: start: 20091001, end: 20091001

REACTIONS (5)
  - FEBRILE NEUTROPENIA [None]
  - DISSEMINATED INTRAVASCULAR COAGULATION [None]
  - STEVENS-JOHNSON SYNDROME [None]
  - BONE MARROW FAILURE [None]
  - SEPSIS [None]
